FAERS Safety Report 10568059 (Version 3)
Quarter: 2014Q4

REPORT INFORMATION
  Report Type: Spontaneous
  Country: JP (occurrence: JP)
  Receive Date: 20141106
  Receipt Date: 20141222
  Transmission Date: 20150529
  Serious: Yes (Death)
  Sender: FDA-Public Use
  Company Number: JP-JNJFOC-20141020275

PATIENT
  Age: 44 Year
  Sex: Male
  Weight: 84 kg

DRUGS (7)
  1. SILECE [Suspect]
     Active Substance: FLUNITRAZEPAM
     Indication: INSOMNIA
     Route: 048
     Dates: start: 2010
  2. QUAZEPAM. [Suspect]
     Active Substance: QUAZEPAM
     Indication: INSOMNIA
     Route: 048
     Dates: start: 20140626
  3. RIVOTRIL [Suspect]
     Active Substance: CLONAZEPAM
     Indication: ANXIETY
     Route: 048
     Dates: start: 20140922
  4. LAMICTAL [Suspect]
     Active Substance: LAMOTRIGINE
     Indication: MOOD SWINGS
     Route: 048
     Dates: start: 20141004
  5. XEPLION [Suspect]
     Active Substance: PALIPERIDONE PALMITATE
     Indication: SCHIZOAFFECTIVE DISORDER
     Route: 030
     Dates: start: 20141020, end: 20141020
  6. QUETIAPINE [Suspect]
     Active Substance: QUETIAPINE
     Indication: INSOMNIA
     Route: 048
     Dates: start: 20140922
  7. LAMICTAL [Suspect]
     Active Substance: LAMOTRIGINE
     Indication: DEPRESSION
     Route: 048
     Dates: start: 20141004

REACTIONS (3)
  - Overdose [Fatal]
  - Completed suicide [Fatal]
  - Product use issue [Unknown]

NARRATIVE: CASE EVENT DATE: 20141021
